FAERS Safety Report 5019765-3 (Version None)
Quarter: 2006Q2

REPORT INFORMATION
  Report Type: 
  Country: None (occurrence: None)
  Receive Date: 20060601
  Receipt Date: 20060522
  Transmission Date: 20061013
  Serious: Yes (Other)
  Sender: FDA-Public Use
  Company Number: 2006060243

PATIENT
  Age: 58 Year
  Sex: Female
  Weight: 55 kg

DRUGS (5)
  1. SERTRALINE HCL [Suspect]
     Indication: DEPRESSION
     Dosage: 100 MG (100 MG, 1 IN 1 D), ORAL
     Route: 048
     Dates: start: 20051015, end: 20060502
  2. ESTRADIOL [Concomitant]
  3. PROGESTERONE [Concomitant]
  4. MANIPREX (LITHIUM CARBONATE) [Concomitant]
  5. LORMETAZEPAM [Concomitant]

REACTIONS (5)
  - CHOLELITHIASIS [None]
  - DEPRESSION [None]
  - HEPATITIS A [None]
  - HEPATITIS ACUTE [None]
  - HEPATITIS TOXIC [None]
